FAERS Safety Report 25848326 (Version 1)
Quarter: 2025Q3

REPORT INFORMATION
  Report Type: Spontaneous
  Country: EU (occurrence: EU)
  Receive Date: 20250925
  Receipt Date: 20250925
  Transmission Date: 20251021
  Serious: Yes (Death, Hospitalization)
  Sender: ELI LILLY AND COMPANY
  Company Number: None

PATIENT
  Age: 87 Year
  Sex: Male
  Weight: 58 kg

DRUGS (5)
  1. ERBITUX [Suspect]
     Active Substance: CETUXIMAB
     Indication: Lip squamous cell carcinoma
     Dosage: 500 MG/M2, UNK
     Route: 042
     Dates: start: 20250724, end: 20250807
  2. OPDIVO [Suspect]
     Active Substance: NIVOLUMAB
     Indication: Lip squamous cell carcinoma
     Dosage: 240 MG, UNK
     Route: 042
     Dates: start: 20250724, end: 20250807
  3. FLUCONAZOLE [Suspect]
     Active Substance: FLUCONAZOLE
     Indication: Oral candidiasis
     Dosage: UNK UNK, DAILY
     Route: 042
     Dates: start: 20250728, end: 20250807
  4. MIRTAZAPINE [Suspect]
     Active Substance: MIRTAZAPINE
     Indication: Depression
     Dosage: UNK UNK, DAILY
     Route: 048
     Dates: start: 20250808, end: 20250815
  5. PIPERACILLIN SODIUM\TAZOBACTAM SODIUM [Suspect]
     Active Substance: PIPERACILLIN SODIUM\TAZOBACTAM SODIUM
     Indication: Pneumonia aspiration
     Route: 042
     Dates: start: 20250804, end: 20250811

REACTIONS (2)
  - Death [Fatal]
  - Anaemia [Recovered/Resolved]

NARRATIVE: CASE EVENT DATE: 20250811
